FAERS Safety Report 14684446 (Version 15)
Quarter: 2018Q4

REPORT INFORMATION
  Report Type: Report from Study
  Country: CL (occurrence: CL)
  Receive Date: 20180327
  Receipt Date: 20181228
  Transmission Date: 20190204
  Serious: Yes (Hospitalization, Other)
  Sender: FDA-Public Use
  Company Number: CL-CELGENEUS-CHL-20170905358

PATIENT
  Age: 68 Year
  Sex: Female
  Weight: 64.5 kg

DRUGS (45)
  1. AMLODIPINE [Concomitant]
     Active Substance: AMLODIPINE BESYLATE
     Indication: HYPERTENSION
     Route: 065
     Dates: start: 2016, end: 20180314
  2. HYDROCHLOROTHIAZIDE. [Concomitant]
     Active Substance: HYDROCHLOROTHIAZIDE
     Route: 065
     Dates: start: 20170917, end: 20180316
  3. CHLORPHENIRAMINE MALEATE/CODEINE PHOSPHATE/PSUEDOEPHEDRINE HYDROCHLORI [Concomitant]
     Indication: COUGH
     Route: 065
     Dates: start: 20170515, end: 20170522
  4. ABRAXANE [Suspect]
     Active Substance: PACLITAXEL
     Dosage: 100 MILLIGRAM/SQ. METER
     Route: 041
     Dates: start: 20170803
  5. MPDL3280A (ATEZOLIZUMAB) [Suspect]
     Active Substance: ATEZOLIZUMAB
     Dosage: 840 MILLIGRAM
     Route: 041
     Dates: start: 20170817
  6. LOSARTAN. [Concomitant]
     Active Substance: LOSARTAN
     Indication: HYPERTENSION
     Route: 065
     Dates: start: 2000, end: 20180316
  7. LOSARTAN. [Concomitant]
     Active Substance: LOSARTAN
     Route: 065
     Dates: start: 20180501
  8. CARVEDILOL. [Concomitant]
     Active Substance: CARVEDILOL
     Route: 048
     Dates: start: 20180601, end: 20180603
  9. AMLODIPINE [Concomitant]
     Active Substance: AMLODIPINE BESYLATE
     Route: 065
     Dates: start: 20180320
  10. AMLODIPINE [Concomitant]
     Active Substance: AMLODIPINE BESYLATE
     Route: 065
     Dates: start: 20180322
  11. ASPIRIN. [Concomitant]
     Active Substance: ASPIRIN
     Indication: PROPHYLAXIS
     Route: 065
     Dates: start: 2000
  12. CALCIUM CARBONATE/CHOLECALCIFEROL [Concomitant]
     Active Substance: CALCIUM CARBONATE\CHOLECALCIFEROL
     Indication: PROPHYLAXIS
     Route: 065
     Dates: start: 20170927
  13. SALINE [Concomitant]
     Active Substance: SODIUM CHLORIDE
     Indication: PRODUCT USED FOR UNKNOWN INDICATION
     Dosage: .9 PERCENT
     Route: 065
     Dates: start: 20171120, end: 20171122
  14. PARACETAMOL [Concomitant]
     Active Substance: ACETAMINOPHEN
     Indication: MYALGIA
     Route: 041
     Dates: start: 20170713
  15. PARACETAMOL [Concomitant]
     Active Substance: ACETAMINOPHEN
     Route: 041
     Dates: start: 201803, end: 20180403
  16. APIXABAN [Concomitant]
     Active Substance: APIXABAN
     Route: 065
     Dates: start: 20180612
  17. ABRAXANE [Suspect]
     Active Substance: PACLITAXEL
     Indication: BREAST CANCER METASTATIC
     Dosage: 100 MILLIGRAM/SQ. METER
     Route: 041
     Dates: start: 20170406
  18. CARVEDILOL. [Concomitant]
     Active Substance: CARVEDILOL
     Route: 048
     Dates: start: 20180322, end: 20180329
  19. PARACETAMOL [Concomitant]
     Active Substance: ACETAMINOPHEN
     Indication: COLITIS
     Route: 065
     Dates: start: 20180120
  20. PARACETAMOL [Concomitant]
     Active Substance: ACETAMINOPHEN
     Route: 065
     Dates: start: 20180316, end: 20180322
  21. MPDL3280A (ATEZOLIZUMAB) [Suspect]
     Active Substance: ATEZOLIZUMAB
     Dosage: 840 MILLIGRAM
     Route: 041
     Dates: start: 20170803
  22. CARVEDILOL. [Concomitant]
     Active Substance: CARVEDILOL
     Indication: HYPERTENSION
     Route: 048
     Dates: start: 2016, end: 20180314
  23. TRAMADOL HYDROCHLORIDE. [Concomitant]
     Active Substance: TRAMADOL HYDROCHLORIDE
     Indication: MYALGIA
     Route: 065
     Dates: start: 20180120, end: 20180527
  24. PARACETAMOL [Concomitant]
     Active Substance: ACETAMINOPHEN
     Indication: CLOSTRIDIUM DIFFICILE COLITIS
     Route: 041
     Dates: start: 20170912, end: 20170917
  25. PARACETAMOL [Concomitant]
     Active Substance: ACETAMINOPHEN
     Indication: COLITIS ULCERATIVE
     Route: 041
     Dates: start: 201711
  26. ABRAXANE [Suspect]
     Active Substance: PACLITAXEL
     Dosage: 100 MILLIGRAM/SQ. METER
     Route: 041
     Dates: start: 20180228
  27. MPDL3280A (ATEZOLIZUMAB) [Suspect]
     Active Substance: ATEZOLIZUMAB
     Indication: BREAST CANCER METASTATIC
     Route: 041
     Dates: start: 20170406
  28. FENOTEROL HYDROBROMIDE/IPRATROPIUM BROMIDE [Concomitant]
     Indication: COUGH
     Route: 065
     Dates: start: 20171217
  29. IMIPENEM [Concomitant]
     Active Substance: IMIPENEM
     Indication: BACTERAEMIA
     Route: 065
     Dates: start: 20180405, end: 20180420
  30. ABRAXANE [Suspect]
     Active Substance: PACLITAXEL
     Dosage: 100 MILLIGRAM/SQ. METER
     Route: 041
     Dates: start: 20171031
  31. CARVEDILOL. [Concomitant]
     Active Substance: CARVEDILOL
     Route: 048
     Dates: start: 20180501
  32. PREGABALIN. [Concomitant]
     Active Substance: PREGABALIN
     Indication: PAIN IN EXTREMITY
     Route: 065
     Dates: start: 20170427, end: 20180527
  33. METFORMIN [Concomitant]
     Active Substance: METFORMIN HYDROCHLORIDE
     Indication: INSULIN RESISTANCE
     Route: 065
     Dates: start: 20170626, end: 20170720
  34. PARACETAMOL [Concomitant]
     Active Substance: ACETAMINOPHEN
     Route: 048
     Dates: start: 201803, end: 20180421
  35. APIXABAN [Concomitant]
     Active Substance: APIXABAN
     Indication: DEEP VEIN THROMBOSIS
     Route: 065
     Dates: start: 20180604, end: 20180611
  36. SULFAMETHOXAZOLE/TRIMETHOPRIM [Concomitant]
     Active Substance: SULFAMETHOXAZOLE\TRIMETHOPRIM
     Indication: PROPHYLAXIS
     Route: 065
     Dates: start: 20170927, end: 20171023
  37. SULFAMETHOXAZOLE/TRIMETHOPRIM [Concomitant]
     Active Substance: SULFAMETHOXAZOLE\TRIMETHOPRIM
     Route: 065
     Dates: start: 20180322
  38. PARACETAMOL [Concomitant]
     Active Substance: ACETAMINOPHEN
     Indication: ABDOMINAL PAIN LOWER
     Route: 065
     Dates: start: 20170912, end: 20170912
  39. ABRAXANE [Suspect]
     Active Substance: PACLITAXEL
     Dosage: 100 MILLIGRAM/SQ. METER
     Route: 041
     Dates: start: 20170817
  40. MPDL3280A (ATEZOLIZUMAB) [Suspect]
     Active Substance: ATEZOLIZUMAB
     Dosage: 840 MILLIGRAM
     Route: 041
     Dates: start: 20180228
  41. LOSARTAN. [Concomitant]
     Active Substance: LOSARTAN
     Route: 065
     Dates: start: 20180531
  42. HYDROCHLOROTHIAZIDE. [Concomitant]
     Active Substance: HYDROCHLOROTHIAZIDE
     Indication: HYPERTENSION
     Route: 065
     Dates: start: 2000, end: 20170908
  43. FENOTEROL HYDROBROMIDE/IPRATROPIUM BROMIDE [Concomitant]
     Indication: BRONCHITIS
     Route: 065
     Dates: start: 20171017
  44. IMIPENEM [Concomitant]
     Active Substance: IMIPENEM
     Indication: CYTOMEGALOVIRUS INFECTION
  45. DOLOTEN [Concomitant]
     Active Substance: ACETAMINOPHEN\TRAMADOL
     Indication: MYALGIA
     Route: 065
     Dates: start: 20180120

REACTIONS (7)
  - Colitis ulcerative [Recovered/Resolved]
  - Clostridium difficile colitis [Recovered/Resolved]
  - Colitis [Recovered/Resolved]
  - Cytomegalovirus infection [Recovered/Resolved]
  - Klebsiella bacteraemia [Recovered/Resolved]
  - Colitis [Recovered/Resolved]
  - Proctitis ulcerative [Recovering/Resolving]

NARRATIVE: CASE EVENT DATE: 20170616
